FAERS Safety Report 22161839 (Version 1)
Quarter: 2023Q1

REPORT INFORMATION
  Report Type: Spontaneous
  Country: LT (occurrence: LT)
  Receive Date: 20230331
  Receipt Date: 20230331
  Transmission Date: 20230417
  Serious: Yes (Other)
  Sender: FDA-Public Use
  Company Number: LT-TEVA-2023-LT-2870868

PATIENT
  Age: 44 Year
  Sex: Female

DRUGS (1)
  1. QUETIAPINE [Suspect]
     Active Substance: QUETIAPINE
     Indication: Product used for unknown indication
     Route: 065
     Dates: start: 202212

REACTIONS (4)
  - Mental impairment [Unknown]
  - Blood prolactin increased [Unknown]
  - Head discomfort [Unknown]
  - Galactorrhoea [Unknown]
